FAERS Safety Report 5504102-8 (Version None)
Quarter: 2007Q4

REPORT INFORMATION
  Report Type: 
  Country: None (occurrence: None)
  Receive Date: 20071101
  Receipt Date: 20071024
  Transmission Date: 20080405
  Serious: Yes (Hospitalization, Disabling)
  Sender: FDA-Public Use
  Company Number: US-ELI_LILLY_AND_COMPANY-US200708005179

PATIENT
  Sex: Female

DRUGS (1)
  1. FORTEO [Suspect]
     Indication: OSTEOPOROSIS
     Dosage: 20 UG, DAILY (1/D)
     Dates: start: 20070710

REACTIONS (7)
  - BACK PAIN [None]
  - FALL [None]
  - FEMUR FRACTURE [None]
  - KIDNEY INFECTION [None]
  - LOWER LIMB FRACTURE [None]
  - MOBILITY DECREASED [None]
  - VISUAL ACUITY REDUCED [None]
